FAERS Safety Report 16832013 (Version 1)
Quarter: 2019Q3

REPORT INFORMATION
  Report Type: Spontaneous
  Country: FR (occurrence: FR)
  Receive Date: 20190920
  Receipt Date: 20190920
  Transmission Date: 20191005
  Serious: Yes (Other)
  Sender: FDA-Public Use
  Company Number: FR-009507513-1909FRA006060

PATIENT
  Age: 76 Year
  Sex: Female
  Weight: 68 kg

DRUGS (1)
  1. KEYTRUDA [Suspect]
     Active Substance: PEMBROLIZUMAB
     Indication: BRONCHIAL CARCINOMA
     Dosage: POWDER FOR SOLUTION TO DILUTE FOR INFUSION
     Route: 041
     Dates: start: 20181211, end: 20190121

REACTIONS (4)
  - Dysphonia [Recovered/Resolved]
  - Dropped head syndrome [Recovered/Resolved]
  - Dysphagia [Recovered/Resolved]
  - Hepatitis [Recovered/Resolved]

NARRATIVE: CASE EVENT DATE: 20190118
